FAERS Safety Report 5622961-5 (Version None)
Quarter: 2008Q1

REPORT INFORMATION
  Report Type: 
  Country: None (occurrence: None)
  Receive Date: 20080206
  Receipt Date: 20080128
  Transmission Date: 20080703
  Serious: Yes (Death)
  Sender: FDA-Public Use
  Company Number: 2008SP002099

PATIENT
  Age: 76 Year
  Sex: Female

DRUGS (2)
  1. TEMODAL [Suspect]
     Indication: ANAPLASTIC ASTROCYTOMA
  2. TEMODAL [Suspect]
     Indication: GLIOBLASTOMA

REACTIONS (2)
  - SHOCK [None]
  - THROMBOCYTOPENIA [None]
